FAERS Safety Report 6071539-0 (Version None)
Quarter: 2009Q1

REPORT INFORMATION
  Report Type: 
  Country: None (occurrence: None)
  Receive Date: 20090205
  Receipt Date: 20090205
  Transmission Date: 20090719
  Serious: No
  Sender: FDA-Public Use
  Company Number: None

PATIENT
  Age: 59 Year
  Sex: Male
  Weight: 82.64 kg

DRUGS (1)
  1. METHENAMINE TAB [Suspect]
     Indication: URINARY TRACT INFECTION
     Dosage: 1 GM BID PO
     Route: 048
     Dates: start: 20081117, end: 20081224

REACTIONS (1)
  - SKIN ULCER [None]
